FAERS Safety Report 6236224-0 (Version None)
Quarter: 2009Q2

REPORT INFORMATION
  Report Type: 
  Country: None (occurrence: None)
  Receive Date: 20090619
  Receipt Date: 20090615
  Transmission Date: 20091009
  Serious: Yes (Hospitalization)
  Sender: FDA-Public Use
  Company Number: PH-PFIZER INC-2009227562

PATIENT
  Age: 61 Year

DRUGS (13)
  1. NAPROXEN [Suspect]
     Indication: OSTEOARTHRITIS
     Dosage: UNK
     Route: 048
     Dates: start: 20080506
  2. BLINDED *PLACEBO [Suspect]
     Indication: OSTEOARTHRITIS
     Dosage: UNK
     Route: 048
     Dates: start: 20080506
  3. CELECOXIB [Suspect]
     Indication: OSTEOARTHRITIS
     Dosage: UNK
     Route: 048
     Dates: start: 20080506
  4. IBUPROFEN [Suspect]
     Indication: OSTEOARTHRITIS
     Dosage: UNK
     Route: 048
     Dates: start: 20080506
  5. NAPROXEN [Suspect]
     Dosage: UNK
     Route: 048
     Dates: start: 20080506
  6. NAPROXEN [Suspect]
     Indication: RHEUMATOID ARTHRITIS
  7. BLINDED *PLACEBO [Suspect]
     Indication: RHEUMATOID ARTHRITIS
  8. BLINDED CELECOXIB [Suspect]
     Indication: RHEUMATOID ARTHRITIS
  9. IBUPROFEN [Suspect]
     Indication: RHEUMATOID ARTHRITIS
  10. NAPROXEN [Suspect]
  11. NEXIUM [Concomitant]
     Dosage: UNK
     Route: 048
     Dates: start: 20080506
  12. METOPROLOL [Concomitant]
     Dosage: UNK
     Route: 048
     Dates: start: 20070311
  13. ISOSORBIDE MONONITRATE [Concomitant]
     Dosage: UNK
     Route: 048
     Dates: start: 20090120

REACTIONS (8)
  - BLOOD PRESSURE INCREASED [None]
  - DYSPNOEA [None]
  - HEADACHE [None]
  - HIGH DENSITY LIPOPROTEIN DECREASED [None]
  - HYPERTENSIVE CRISIS [None]
  - HYPOKALAEMIA [None]
  - NAUSEA [None]
  - NECK PAIN [None]
